FAERS Safety Report 6215527-X (Version None)
Quarter: 2009Q2

REPORT INFORMATION
  Report Type: 
  Country: None (occurrence: None)
  Receive Date: 20090604
  Receipt Date: 20090526
  Transmission Date: 20091009
  Serious: Yes (Other)
  Sender: FDA-Public Use
  Company Number: BE-RANBAXY-2009RR-22534

PATIENT
  Age: 55 Year
  Sex: Male

DRUGS (8)
  1. ZIDOVUDINE [Suspect]
     Indication: HIV INFECTION
     Dosage: 300 MG, BID
  2. TENOFOVIR DISOPROXIL FUMARATE [Suspect]
     Indication: HIV INFECTION
     Dosage: 245 MG, QD
  3. DARUNAVIR [Suspect]
     Indication: HIV INFECTION
     Dosage: 600 MG, BID
  4. RITONIVAR [Suspect]
     Indication: HIV INFECTION
     Dosage: 100 MG, BID
  5. CEFTRIAXONE [Concomitant]
  6. METRONIDAZOLE [Concomitant]
  7. VANCOMYCIN HCL [Concomitant]
  8. CASPOFUNGIN [Concomitant]

REACTIONS (2)
  - IMMUNE RECONSTITUTION SYNDROME [None]
  - PARANASAL CYST [None]
